FAERS Safety Report 8449609-9 (Version None)
Quarter: 2012Q2

REPORT INFORMATION
  Report Type: 
  Country: None (occurrence: None)
  Receive Date: 20120620
  Receipt Date: 20120611
  Transmission Date: 20120825
  Serious: Yes (Hospitalization, Other)
  Sender: FDA-Public Use
  Company Number: DE-BIOGENIDEC-2012BI021003

PATIENT
  Age: 28 Year
  Sex: Female
  Weight: 78 kg

DRUGS (4)
  1. CEFIXIME [Concomitant]
     Indication: NASOPHARYNGITIS
     Dates: start: 20120220, end: 20120225
  2. TYSABRI [Suspect]
     Indication: MULTIPLE SCLEROSIS
     Route: 042
     Dates: start: 20081030
  3. CITALOPRAM HYDROBROMIDE [Concomitant]
     Indication: DEPRESSION
     Dates: start: 20080101
  4. FALITHROM [Concomitant]
     Indication: ACTIVATED PROTEIN C RESISTANCE TEST
     Dates: start: 20000101

REACTIONS (2)
  - PREGNANCY [None]
  - ABORTION SPONTANEOUS [None]
